FAERS Safety Report 24389189 (Version 2)
Quarter: 2024Q4

REPORT INFORMATION
  Report Type: Spontaneous
  Country: US (occurrence: US)
  Receive Date: 20241002
  Receipt Date: 20241011
  Transmission Date: 20250115
  Serious: No
  Sender: BRISTOL MYERS SQUIBB
  Company Number: US-BRISTOL-MYERS SQUIBB COMPANY-2024-143979

PATIENT
  Age: 47 Year
  Sex: Male

DRUGS (2)
  1. OPDIVO [Suspect]
     Active Substance: NIVOLUMAB
     Indication: Product used for unknown indication
     Dosage: 100MG/10ML, 40MG/4ML
  2. OPDIVO [Suspect]
     Active Substance: NIVOLUMAB
     Dosage: 40MG/4ML

REACTIONS (1)
  - Counterfeit product administered [Unknown]
